FAERS Safety Report 10057068 (Version 1)
Quarter: 2014Q2

REPORT INFORMATION
  Report Type: Spontaneous
  Country: US (occurrence: US)
  Receive Date: 20140403
  Receipt Date: 20140403
  Transmission Date: 20141212
  Serious: Yes (Hospitalization)
  Sender: FDA-Public Use
  Company Number: US-BAYER-2014-049155

PATIENT
  Age: 49 Year
  Sex: Female
  Weight: 81.63 kg

DRUGS (6)
  1. YASMIN [Suspect]
  2. OCELLA [Suspect]
  3. ZYLET [Concomitant]
     Dosage: 1 DROP INTO OU (INTERPRETED AS BOTH EYES) Q 2 H (INTERPRETED AS HOURS
     Dates: start: 20090701
  4. LEVOXYL [Concomitant]
     Dosage: 0.15 MG, QD
     Route: 048
     Dates: start: 20090630, end: 20090930
  5. LEVOXYL [Concomitant]
     Dosage: 150 MCG, ONCE A DAY
     Route: 048
  6. ADVIL [Concomitant]
     Indication: LOCAL SWELLING

REACTIONS (2)
  - Pulmonary embolism [None]
  - Deep vein thrombosis [None]
